FAERS Safety Report 12949558 (Version 1)
Quarter: 2016Q4

REPORT INFORMATION
  Report Type: Spontaneous
  Country: US (occurrence: US)
  Receive Date: 20161116
  Receipt Date: 20161116
  Transmission Date: 20170207
  Serious: No
  Sender: FDA-Public Use
  Company Number: None

PATIENT
  Age: 3 Year
  Sex: Male
  Weight: 15.66 kg

DRUGS (2)
  1. ADVIL [Concomitant]
     Active Substance: IBUPROFEN
  2. MONTELUKAST SODIUM. [Suspect]
     Active Substance: MONTELUKAST SODIUM
     Indication: MULTIPLE ALLERGIES
     Dosage: ?          QUANTITY:30 TABLET(S);?
     Route: 048
     Dates: start: 20161110, end: 20161115

REACTIONS (6)
  - Cough [None]
  - Hand-foot-and-mouth disease [None]
  - Pyrexia [None]
  - Stomatitis [None]
  - Condition aggravated [None]
  - Nasal congestion [None]

NARRATIVE: CASE EVENT DATE: 20161114
